FAERS Safety Report 5277938-9 (Version None)
Quarter: 2007Q1

REPORT INFORMATION
  Report Type: 
  Country: None (occurrence: None)
  Receive Date: 20070327
  Receipt Date: 20070316
  Transmission Date: 20070707
  Serious: Yes (Hospitalization)
  Sender: FDA-Public Use
  Company Number: JP-PFIZER INC-2007023328

PATIENT
  Age: 64 Year
  Sex: Male

DRUGS (7)
  1. LIPITOR [Suspect]
     Indication: HYPERCHOLESTEROLAEMIA
     Dosage: DAILY DOSE:10MG
     Route: 048
     Dates: start: 20070205, end: 20070313
  2. GLYBURIDE [Concomitant]
     Dosage: DAILY DOSE:.675MG
     Route: 048
  3. GLYCORAN [Concomitant]
     Dosage: DAILY DOSE:500MG
     Route: 048
  4. LOSARTAN POTASSIUM [Concomitant]
     Dosage: DAILY DOSE:50MG
     Route: 048
  5. AMLODIN [Concomitant]
     Dosage: DAILY DOSE:5MG
     Route: 042
  6. ASPIRIN [Concomitant]
     Dosage: DAILY DOSE:100MG
     Route: 048
  7. WARFARIN SODIUM [Concomitant]
     Dosage: DAILY DOSE:4MG
     Route: 048

REACTIONS (3)
  - ARTHRALGIA [None]
  - ASTHENIA [None]
  - JOINT SWELLING [None]
